FAERS Safety Report 13734623 (Version 3)
Quarter: 2018Q4

REPORT INFORMATION
  Report Type: Spontaneous
  Country: JP (occurrence: JP)
  Receive Date: 20170709
  Receipt Date: 20181012
  Transmission Date: 20190204
  Serious: No
  Sender: FDA-Public Use
  Company Number: JP-009507513-1706JPN001774J

PATIENT
  Sex: Female
  Weight: 51 kg

DRUGS (8)
  1. AZILVA [Concomitant]
     Active Substance: AZILSARTAN KAMEDOXOMIL
     Dosage: 10 MG, QD
     Route: 048
  2. CARBOCISTEINE [Concomitant]
     Active Substance: CARBOCYSTEINE
     Dosage: 500 MG, BID
     Route: 048
  3. CELECOX [Concomitant]
     Active Substance: CELECOXIB
     Dosage: 100 MG, BID
     Route: 048
     Dates: start: 20170512
  4. BILASTINE [Concomitant]
     Active Substance: BILASTINE
     Dosage: 20 MG, QD
     Route: 048
     Dates: start: 20170529
  5. OXIS [Concomitant]
     Active Substance: FORMOTEROL FUMARATE
     Dosage: 9 MICROGRAM, BID
     Route: 051
  6. KEYTRUDA [Suspect]
     Active Substance: PEMBROLIZUMAB
     Indication: LUNG ADENOCARCINOMA
     Dosage: 200 MG, Q3W
     Route: 041
     Dates: start: 20170418
  7. MAGNESIUM OXIDE. [Concomitant]
     Active Substance: MAGNESIUM OXIDE
     Dosage: 250 MG, TID
     Route: 048
  8. MUCOSTA [Concomitant]
     Active Substance: REBAMIPIDE
     Dosage: 100 MG, BID
     Route: 048
     Dates: start: 20170512

REACTIONS (1)
  - Arthralgia [Not Recovered/Not Resolved]
